FAERS Safety Report 16627369 (Version 2)
Quarter: 2019Q3

REPORT INFORMATION
  Report Type: Spontaneous
  Country: JP (occurrence: JP)
  Receive Date: 20190724
  Receipt Date: 20190913
  Transmission Date: 20191004
  Serious: Yes (Hospitalization)
  Sender: FDA-Public Use
  Company Number: JP-JNJFOC-20190725145

PATIENT
  Age: 72 Year
  Sex: Male

DRUGS (3)
  1. HEPARIN [Concomitant]
     Active Substance: HEPARIN SODIUM
     Indication: RESORPTION BONE INCREASED
     Dosage: 100 U / KG + 3000 U
  2. RIVAROXABAN [Suspect]
     Active Substance: RIVAROXABAN
     Indication: THROMBOSIS PROPHYLAXIS
     Dosage: DAILY DOSE 10 MG
     Route: 048
     Dates: start: 20160614, end: 20160627
  3. RIVAROXABAN [Suspect]
     Active Substance: RIVAROXABAN
     Dosage: DAILY DOSE 10 MG
     Route: 048
     Dates: start: 20160629

REACTIONS (1)
  - Cardiac tamponade [Recovering/Resolving]

NARRATIVE: CASE EVENT DATE: 20160627
